FAERS Safety Report 15093410 (Version 1)
Quarter: 2018Q2

REPORT INFORMATION
  Report Type: Spontaneous
  Country: BR (occurrence: BR)
  Receive Date: 20180629
  Receipt Date: 20180629
  Transmission Date: 20180711
  Serious: Yes (Death, Hospitalization)
  Sender: FDA-Public Use
  Company Number: BR-GEHC-2018CSU002548

PATIENT

DRUGS (4)
  1. OMNIPAQUE [Suspect]
     Active Substance: IOHEXOL
     Indication: HEART DISEASE CONGENITAL
     Dosage: 6 ML, SINGLE
     Route: 042
     Dates: start: 20180503, end: 20180503
  2. DEXCHLORPHENIRAMINE [Concomitant]
     Active Substance: DEXCHLORPHENIRAMINE
  3. HYDROCORTISONE. [Concomitant]
     Active Substance: HYDROCORTISONE
  4. RANITIDINE. [Concomitant]
     Active Substance: RANITIDINE

REACTIONS (5)
  - Hypotension [Fatal]
  - Hypoperfusion [Fatal]
  - Electrolyte imbalance [Fatal]
  - Renal impairment [Fatal]
  - Bradycardia [Fatal]

NARRATIVE: CASE EVENT DATE: 20180504
